FAERS Safety Report 10508509 (Version 1)
Quarter: 2014Q4

REPORT INFORMATION
  Report Type: Spontaneous
  Country: US (occurrence: None)
  Receive Date: 20141007
  Receipt Date: 20141007
  Transmission Date: 20150528
  Serious: No
  Sender: FDA-Public Use
  Company Number: LH201400277

PATIENT
  Age: 34 Year
  Sex: Female

DRUGS (2)
  1. PRENATAL VITAMINS (ASCORBIC ACID, CALCIUM PANTHENOATE, CYANOCOBALMIN, ERGOCALCIFEROL, NICOTINAMIDE, PYRIDOXINE HYDROCHLORIDE, RETINOL PALMITATE, RIBOFLAVIN, THIAMINE MONONITRATE) [Concomitant]
  2. MAKENA [Suspect]
     Active Substance: HYDROXYPROGESTERONE CAPROATE
     Indication: PREMATURE DELIVERY
     Route: 030
     Dates: start: 20140813, end: 20140917

REACTIONS (3)
  - Premature labour [None]
  - Haemorrhage [None]
  - Cervical incompetence [None]

NARRATIVE: CASE EVENT DATE: 20140923
